FAERS Safety Report 10443813 (Version 1)
Quarter: 2014Q3

REPORT INFORMATION
  Report Type: Spontaneous
  Country: US (occurrence: US)
  Receive Date: 20140910
  Receipt Date: 20140910
  Transmission Date: 20150326
  Serious: No
  Sender: FDA-Public Use
  Company Number: US-JNJFOC-20140826936

PATIENT
  Sex: Female
  Weight: 56.25 kg

DRUGS (2)
  1. DURAGESIC [Suspect]
     Active Substance: FENTANYL
     Indication: PRODUCT USED FOR UNKNOWN INDICATION
     Route: 062
  2. DURAGESIC [Suspect]
     Active Substance: FENTANYL
     Indication: PRODUCT USED FOR UNKNOWN INDICATION
     Route: 062

REACTIONS (7)
  - Product quality issue [Unknown]
  - Drug dose omission [Unknown]
  - Wrong technique in drug usage process [Unknown]
  - Dermatitis contact [Unknown]
  - Wrong technique in drug usage process [Not Recovered/Not Resolved]
  - Drug ineffective [Unknown]
  - Dermatitis contact [Not Recovered/Not Resolved]

NARRATIVE: CASE EVENT DATE: 2014
